FAERS Safety Report 5449272-5 (Version None)
Quarter: 2007Q3

REPORT INFORMATION
  Report Type: 
  Country: None (occurrence: None)
  Receive Date: 20070911
  Receipt Date: 20070906
  Transmission Date: 20080115
  Serious: Yes (Death, Hospitalization, Other)
  Sender: FDA-Public Use
  Company Number: US-PFIZER INC-2007003029

PATIENT
  Sex: Female
  Weight: 81.6 kg

DRUGS (2)
  1. CELEBREX [Suspect]
     Indication: HIP FRACTURE
     Dates: start: 20041001, end: 20050114
  2. VIOXX [Suspect]
     Dates: start: 20020103, end: 20041231

REACTIONS (1)
  - CARDIO-RESPIRATORY ARREST [None]
